FAERS Safety Report 4661748-7 (Version None)
Quarter: 2005Q2

REPORT INFORMATION
  Report Type: 
  Country: None (occurrence: None)
  Receive Date: 20050513
  Receipt Date: 20050510
  Transmission Date: 20051028
  Serious: Yes (Other)
  Sender: FDA-Public Use
  Company Number: PHBS2005BE06576

PATIENT
  Age: 52 Year
  Sex: Female

DRUGS (3)
  1. TRILEPTAL [Suspect]
     Indication: EPILEPSY
     Dosage: 600 MG, TID
     Route: 048
     Dates: start: 20020101
  2. TEGRETOL [Suspect]
     Indication: EPILEPSY
     Dates: end: 20020101
  3. DEPAKENE [Concomitant]
     Indication: EPILEPSY
     Dosage: 300 MG, BID

REACTIONS (4)
  - BONE MARROW DEPRESSION [None]
  - LEUKOPENIA [None]
  - MICROCYTIC ANAEMIA [None]
  - PLATELET COUNT DECREASED [None]
